FAERS Safety Report 4578167-4 (Version None)
Quarter: 2005Q1

REPORT INFORMATION
  Report Type: 
  Country: None (occurrence: None)
  Receive Date: 20050202
  Receipt Date: 20050202
  Transmission Date: 20050727
  Serious: Yes (Death, Hospitalization)
  Sender: FDA-Public Use
  Company Number: None

PATIENT
  Age: 40 Year
  Sex: Male

DRUGS (5)
  1. KALETRA [Suspect]
     Indication: HIV INFECTION
     Dosage: 3 CAPS BID
  2. VIRADEX [Suspect]
     Dosage: 400 MG Q DAILY
  3. EPIVIR [Suspect]
  4. DIFLUCAN [Concomitant]
  5. BACTRIM DS [Concomitant]

REACTIONS (12)
  - ABDOMINAL PAIN [None]
  - BRADYCARDIA [None]
  - DIALYSIS [None]
  - HAEMATOCRIT ABNORMAL [None]
  - HEPATOTOXICITY [None]
  - HYPERTHERMIA [None]
  - HYPOTENSION [None]
  - LACTIC ACIDOSIS [None]
  - PANCREATITIS [None]
  - PANCYTOPENIA [None]
  - RENAL FAILURE ACUTE [None]
  - THERAPY NON-RESPONDER [None]
